FAERS Safety Report 7119316-3 (Version None)
Quarter: 2010Q4

REPORT INFORMATION
  Report Type: 
  Country: None (occurrence: None)
  Receive Date: 20101123
  Receipt Date: 20101019
  Transmission Date: 20110411
  Serious: Yes (Other)
  Sender: FDA-Public Use
  Company Number: IT-BAYER-201043846GPV

PATIENT
  Age: 72 Year

DRUGS (2)
  1. SORAFENIB [Suspect]
     Indication: RENAL CELL CARCINOMA
     Dosage: TOTAL DAILY DOSE: 800 MG
     Route: 048
     Dates: start: 20061201, end: 20070101
  2. SORAFENIB [Suspect]
     Route: 048
     Dates: start: 20070201

REACTIONS (2)
  - CREATININE RENAL CLEARANCE DECREASED [None]
  - RENAL CELL CARCINOMA [None]
